FAERS Safety Report 10452230 (Version 1)
Quarter: 2014Q3

REPORT INFORMATION
  Report Type: Spontaneous
  Country: AU (occurrence: None)
  Receive Date: 20140911
  Receipt Date: 20140911
  Transmission Date: 20150326
  Serious: Yes (Hospitalization, Other)
  Sender: FDA-Public Use
  Company Number: VAL_03372_2014

PATIENT
  Age: 64 Year
  Sex: Male

DRUGS (5)
  1. DIGOXIN (DIGOXIN) [Suspect]
     Active Substance: DIGOXIN
     Indication: TACHYCARDIA
  2. VERAPAMIL [Suspect]
     Active Substance: VERAPAMIL HYDROCHLORIDE
     Indication: TACHYCARDIA
     Dosage: (240 MG, DAILY) (UNKNOWN THERAPY)
  3. AMIODARONE (AMIODARONE) [Suspect]
     Active Substance: AMIODARONE
     Indication: TACHYCARDIA
  4. METOPROLOL (METOPROLOL - METOPROLOL TARTRATE) [Suspect]
     Active Substance: METOPROLOL
     Indication: TACHYCARDIA
  5. METOPROLOL (METOPROLOL - METOPROLOL TARTRATE) [Suspect]
     Active Substance: METOPROLOL
     Indication: CARDIAC DISORDER

REACTIONS (4)
  - Sinus bradycardia [None]
  - Renal impairment [None]
  - Ventricular tachycardia [None]
  - No therapeutic response [None]
